FAERS Safety Report 17747467 (Version 2)
Quarter: 2022Q1

REPORT INFORMATION
  Report Type: Spontaneous
  Country: FR (occurrence: FR)
  Receive Date: 20200505
  Receipt Date: 20220106
  Transmission Date: 20220423
  Serious: Yes (Other)
  Sender: FDA-Public Use
  Company Number: FR-NOVARTISPH-NVSC2020FR121119

PATIENT
  Sex: Male

DRUGS (6)
  1. PREDNISOLONE [Suspect]
     Active Substance: PREDNISOLONE
     Indication: Langerhans^ cell histiocytosis
     Dosage: RECEIVED ONE CYCLE, QD
     Route: 065
  2. PREDNISOLONE [Suspect]
     Active Substance: PREDNISOLONE
     Indication: BRAF gene mutation
  3. VINBLASTINE [Suspect]
     Active Substance: VINBLASTINE
     Indication: BRAF gene mutation
     Dosage: RECEIVED ONE CYCLE, QW
     Route: 065
  4. VINBLASTINE [Suspect]
     Active Substance: VINBLASTINE
     Indication: Langerhans^ cell histiocytosis
  5. VEMURAFENIB [Suspect]
     Active Substance: VEMURAFENIB
     Indication: Langerhans^ cell histiocytosis
     Dosage: 34 MG/KG, QD
     Route: 048
  6. VEMURAFENIB [Suspect]
     Active Substance: VEMURAFENIB
     Indication: BRAF gene mutation
     Dosage: 240 MG
     Route: 048

REACTIONS (2)
  - Treatment failure [Unknown]
  - Off label use [Unknown]
